FAERS Safety Report 7561436-3 (Version None)
Quarter: 2011Q2

REPORT INFORMATION
  Report Type: 
  Country: None (occurrence: None)
  Receive Date: 20110621
  Receipt Date: 20100726
  Transmission Date: 20111010
  Serious: No
  Sender: FDA-Public Use
  Company Number: US-ASTRAZENECA-2010SE34861

PATIENT
  Age: 64 Year
  Sex: Female

DRUGS (6)
  1. VERAPAMIL XR [Concomitant]
     Indication: PALPITATIONS
  2. MAXAIR [Concomitant]
  3. PULMICORT FLEXHALER [Suspect]
     Indication: ASTHMA
     Dosage: 180MCG TWO PUFFS IN THE MORNING
     Route: 055
     Dates: start: 20080101
  4. VERAPAMIL XR [Concomitant]
     Indication: BLOOD PRESSURE
  5. PAIN PATCH [Concomitant]
  6. BETAMOL DROPS [Concomitant]

REACTIONS (5)
  - ORAL PAIN [None]
  - MYALGIA [None]
  - DYSPHONIA [None]
  - TONGUE DISCOLOURATION [None]
  - CATARACT [None]
